FAERS Safety Report 5106244-8 (Version None)
Quarter: 2006Q3

REPORT INFORMATION
  Report Type: 
  Country: None (occurrence: None)
  Receive Date: 20060918
  Receipt Date: 20060524
  Transmission Date: 20061208
  Serious: Yes (Other)
  Sender: FDA-Public Use
  Company Number: PHMT2006CA01282

PATIENT
  Age: 47 Year
  Sex: Male
  Weight: 78.458 kg

DRUGS (5)
  1. CLOZARIL [Suspect]
     Indication: SCHIZOPHRENIA, PARANOID TYPE
     Dosage: 175 MG QAM, 175 MG AT NOON AND 400 MG QHS
     Route: 048
     Dates: start: 19961016, end: 20060425
  2. SEROQUEL [Concomitant]
     Dosage: 300 MG BID AND 400 MG QHS
  3. CHLORPROMAZINE [Concomitant]
     Dosage: 200 MG QD
  4. MODECATE [Concomitant]
  5. COGENTIN [Concomitant]

REACTIONS (7)
  - BLOOD CREATINE PHOSPHOKINASE INCREASED [None]
  - CARDIAC ENZYMES INCREASED [None]
  - DELIRIUM [None]
  - MYOGLOBIN BLOOD INCREASED [None]
  - NEUROLEPTIC MALIGNANT SYNDROME [None]
  - PYREXIA [None]
  - VIRAL INFECTION [None]
